FAERS Safety Report 5879347-8 (Version None)
Quarter: 2008Q3

REPORT INFORMATION
  Report Type: 
  Country: None (occurrence: None)
  Receive Date: 20080912
  Receipt Date: 20080911
  Transmission Date: 20090109
  Serious: Yes (Hospitalization)
  Sender: FDA-Public Use
  Company Number: A0732257A

PATIENT
  Age: 57 Year
  Sex: Female
  Weight: 175 kg

DRUGS (6)
  1. TRIAMTERENE AND HYDROCHLOROTHIAZIDE [Suspect]
     Indication: HYPERTENSION
     Route: 048
     Dates: start: 20041010
  2. LISINOPRIL [Concomitant]
     Indication: HYPERTENSION
     Dosage: 20MG PER DAY
     Route: 048
     Dates: start: 20041011
  3. VYTORIN [Concomitant]
     Route: 048
     Dates: start: 20061001
  4. TOPROL-XL [Concomitant]
     Indication: HYPERTENSION
     Route: 048
     Dates: start: 20061001
  5. ASPIRIN [Concomitant]
     Dosage: 325MG PER DAY
     Route: 048
     Dates: start: 20050801
  6. CLINICAL STUDY MEDICATION [Concomitant]
     Dates: end: 20080403

REACTIONS (5)
  - DEHYDRATION [None]
  - GASTROOESOPHAGEAL REFLUX DISEASE [None]
  - HYPOVOLAEMIA [None]
  - NON-CARDIAC CHEST PAIN [None]
  - RENAL FAILURE ACUTE [None]
